FAERS Safety Report 19821631 (Version 1)
Quarter: 2021Q3

REPORT INFORMATION
  Report Type: Spontaneous
  Country: HU (occurrence: HU)
  Receive Date: 20210913
  Receipt Date: 20210913
  Transmission Date: 20211014
  Serious: Yes (Other)
  Sender: FDA-Public Use
  Company Number: HU-MYLANLABS-2021M1059385

PATIENT
  Age: 73 Year
  Sex: Female

DRUGS (9)
  1. NORMODIPINE [Concomitant]
     Active Substance: AMLODIPINE BESYLATE
     Indication: HYPERTENSION
     Dosage: 5 MG, QD
     Route: 065
  2. EPIRUBICIN MYLAN [Suspect]
     Active Substance: EPIRUBICIN
     Indication: INVASIVE PAPILLARY BREAST CARCINOMA
     Route: 065
  3. CYCLOPHOSPHAMIDE. [Suspect]
     Active Substance: CYCLOPHOSPHAMIDE
     Indication: INVASIVE PAPILLARY BREAST CARCINOMA
     Route: 065
  4. RIBOCICLIB. [Suspect]
     Active Substance: RIBOCICLIB
     Indication: PRODUCT USED FOR UNKNOWN INDICATION
     Dosage: 200 MG, QD (3 PIECES)
     Route: 065
     Dates: start: 20190910, end: 201909
  5. ANASTROZOLE. [Concomitant]
     Active Substance: ANASTROZOLE
     Indication: HORMONE THERAPY
     Dosage: 1 DF, QD
     Route: 065
  6. RIBOCICLIB. [Suspect]
     Active Substance: RIBOCICLIB
     Dosage: 400 MG, QD
     Route: 065
  7. LETROZOLE. [Suspect]
     Active Substance: LETROZOLE
     Indication: PRODUCT USED FOR UNKNOWN INDICATION
     Dosage: 2.5 MILLIGRAM, QD
     Route: 065
     Dates: start: 20190910
  8. RIBOCICLIB. [Suspect]
     Active Substance: RIBOCICLIB
     Dosage: 200 MG, (2 PIECES)
     Route: 065
     Dates: start: 201909, end: 20210203
  9. FLUOROURACIL. [Suspect]
     Active Substance: FLUOROURACIL
     Indication: INVASIVE PAPILLARY BREAST CARCINOMA
     Dosage: UNK
     Route: 065

REACTIONS (4)
  - Fatigue [Recovered/Resolved]
  - Breast cancer [Unknown]
  - Lung adenocarcinoma [Unknown]
  - Neutropenia [Recovered/Resolved]

NARRATIVE: CASE EVENT DATE: 20190412
